FAERS Safety Report 4895475-8 (Version None)
Quarter: 2006Q1

REPORT INFORMATION
  Report Type: 
  Country: None (occurrence: None)
  Receive Date: 20060130
  Receipt Date: 20060120
  Transmission Date: 20060701
  Serious: Yes (Hospitalization)
  Sender: FDA-Public Use
  Company Number: US-BOEHRINGER INGELHEIM PHARMACEUTICALS, INC.-2006-BP-00790BP

PATIENT
  Sex: Female
  Weight: 43.54 kg

DRUGS (10)
  1. SPIRIVA [Suspect]
     Indication: PNEUMONIA
     Route: 055
     Dates: start: 20050501
  2. LIPITOR [Suspect]
     Indication: BLOOD CHOLESTEROL INCREASED
     Route: 048
     Dates: start: 20050501
  3. LYRICA [Suspect]
     Indication: NEURALGIA
     Route: 048
     Dates: start: 20060117
  4. PERCOCET [Suspect]
     Dates: start: 20060117
  5. ASPIRIN [Concomitant]
     Route: 048
  6. ALDACTONE [Concomitant]
  7. PLAVIX [Concomitant]
  8. ENALAPRIL [Concomitant]
  9. PRILOSEC [Concomitant]
  10. ADVAIR DISKUS 100/50 [Concomitant]

REACTIONS (4)
  - DIFFICULTY IN WALKING [None]
  - FEELING ABNORMAL [None]
  - HYPERSOMNIA [None]
  - NEURALGIA [None]
